FAERS Safety Report 21330423 (Version 1)
Quarter: 2022Q3

REPORT INFORMATION
  Report Type: Spontaneous
  Country: US (occurrence: US)
  Receive Date: 20220913
  Receipt Date: 20220913
  Transmission Date: 20221027
  Serious: Yes (Hospitalization)
  Sender: FDA-Public Use
  Company Number: US-JNJFOC-20220918855

PATIENT
  Sex: Female

DRUGS (1)
  1. OPSUMIT [Interacting]
     Active Substance: MACITENTAN
     Indication: Product used for unknown indication
     Route: 048
     Dates: start: 20220818

REACTIONS (3)
  - Rash [Recovered/Resolved]
  - Tooth infection [Recovered/Resolved]
  - Drug interaction [Recovered/Resolved]
